FAERS Safety Report 14789496 (Version 1)
Quarter: 2018Q2

REPORT INFORMATION
  Report Type: Spontaneous
  Country: US (occurrence: US)
  Receive Date: 20180423
  Receipt Date: 20180423
  Transmission Date: 20180711
  Serious: No
  Sender: FDA-Public Use
  Company Number: US-TEVA-2018-US-883416

PATIENT

DRUGS (1)
  1. AMPHETAMINE W/DEXTROAMPHETAMINE [Suspect]
     Active Substance: AMPHETAMINE SULFATE\DEXTROAMPHETAMINE
     Dosage: 60 MILLIGRAM DAILY;
     Route: 065

REACTIONS (8)
  - Asthenia [Unknown]
  - Increased appetite [Unknown]
  - Headache [Unknown]
  - Nausea [Unknown]
  - Product taste abnormal [Unknown]
  - Abdominal pain upper [Unknown]
  - Fatigue [Unknown]
  - Drug ineffective [Unknown]
